FAERS Safety Report 12687626 (Version 8)
Quarter: 2018Q1

REPORT INFORMATION
  Report Type: Report from Study
  Country: UG (occurrence: UG)
  Receive Date: 20160825
  Receipt Date: 20180104
  Transmission Date: 20180508
  Serious: Yes (Death, Life-Threatening, Hospitalization, Other)
  Sender: FDA-Public Use
  Company Number: UG-GILEAD-2016-0227055

PATIENT
  Age: 37 Year
  Sex: Male
  Weight: 49 kg

DRUGS (8)
  1. EFAVIRENZ/EMTRICITABINE/TENOFOVIR DISOPROXIL FUMARATE [Suspect]
     Active Substance: EFAVIRENZ\EMTRICITABINE\TENOFOVIR DISOPROXIL FUMARATE
     Indication: KAPOSI^S SARCOMA AIDS RELATED
     Dosage: 1100 MG, QD
     Route: 048
     Dates: start: 20140319, end: 20160801
  2. ETHAMBUTOL [Concomitant]
     Active Substance: ETHAMBUTOL HYDROCHLORIDE
     Indication: PULMONARY TUBERCULOSIS
     Dosage: UNK
     Dates: end: 20141010
  3. PACLITAXEL. [Suspect]
     Active Substance: PACLITAXEL
     Indication: KAPOSI^S SARCOMA AIDS RELATED
     Dosage: 156 MG, ONCE
     Route: 042
     Dates: start: 20140319, end: 20140806
  4. PYRAZINAMIDE. [Concomitant]
     Active Substance: PYRAZINAMIDE
     Indication: PULMONARY TUBERCULOSIS
     Dosage: UNK
     Dates: end: 20141010
  5. ISONIAZID. [Concomitant]
     Active Substance: ISONIAZID
     Indication: PULMONARY TUBERCULOSIS
     Dosage: UNK
     Dates: end: 20141010
  6. VIREAD [Suspect]
     Active Substance: TENOFOVIR DISOPROXIL FUMARATE
     Indication: PRODUCT USED FOR UNKNOWN INDICATION
     Dosage: UNK, QD
     Route: 048
     Dates: start: 2014, end: 20160801
  7. SULFAMETHOXAZOLE AND TRIMETHOPRIM [Concomitant]
     Active Substance: SULFAMETHOXAZOLE\TRIMETHOPRIM
  8. RIFAMPICIN [Concomitant]
     Active Substance: RIFAMPIN
     Indication: PULMONARY TUBERCULOSIS
     Dosage: UNK
     Dates: end: 20141010

REACTIONS (2)
  - Anaemia [Fatal]
  - Acute kidney injury [Fatal]

NARRATIVE: CASE EVENT DATE: 20160802
